FAERS Safety Report 11030862 (Version 1)
Quarter: 2015Q2

REPORT INFORMATION
  Report Type: Spontaneous
  Country: US (occurrence: US)
  Receive Date: 20150415
  Receipt Date: 20150415
  Transmission Date: 20150821
  Serious: Yes (Other)
  Sender: FDA-Public Use
  Company Number: US-TEVA-553886USA

PATIENT
  Sex: Female

DRUGS (6)
  1. AVONEX [Concomitant]
     Active Substance: INTERFERON BETA-1A
     Indication: MULTIPLE SCLEROSIS
     Route: 030
  2. AVONEX [Concomitant]
     Active Substance: INTERFERON BETA-1A
     Route: 030
     Dates: start: 20121015, end: 2013
  3. REBIF [Concomitant]
     Active Substance: INTERFERON BETA-1A
  4. COPAXONE [Suspect]
     Active Substance: GLATIRAMER ACETATE
     Indication: MULTIPLE SCLEROSIS
     Dosage: UNKNOWN FORM STRENGTH
  5. AVONEX [Concomitant]
     Active Substance: INTERFERON BETA-1A
     Route: 030
     Dates: start: 20030721
  6. BETASERON [Concomitant]
     Active Substance: INTERFERON BETA-1B

REACTIONS (2)
  - Chronic kidney disease [Unknown]
  - Vasculitis necrotising [Unknown]

NARRATIVE: CASE EVENT DATE: 2013
